FAERS Safety Report 4950702-3 (Version None)
Quarter: 2006Q1

REPORT INFORMATION
  Report Type: 
  Country: None (occurrence: None)
  Receive Date: 20060321
  Receipt Date: 20060321
  Transmission Date: 20060701
  Serious: Yes (Other)
  Sender: FDA-Public Use
  Company Number: None

PATIENT
  Age: 25 Year
  Sex: Female
  Weight: 63.5036 kg

DRUGS (1)
  1. ORTHO-NOVUM 7/7/7-21 [Suspect]
     Indication: CONTRACEPTION
     Dosage: STANDARD   ONCE DAILY  PO
     Route: 048
     Dates: start: 20010609, end: 20010619

REACTIONS (9)
  - ARTHRALGIA [None]
  - BREAST PAIN [None]
  - BREAST SWELLING [None]
  - DEPRESSION [None]
  - MENSTRUATION IRREGULAR [None]
  - METRORRHAGIA [None]
  - PAIN [None]
  - PAIN IN JAW [None]
  - SWELLING [None]
